FAERS Safety Report 9663770 (Version 1)
Quarter: 2013Q4

REPORT INFORMATION
  Report Type: Spontaneous
  Country: JP (occurrence: JP)
  Receive Date: 20131101
  Receipt Date: 20131101
  Transmission Date: 20140711
  Serious: Yes (Other)
  Sender: FDA-Public Use
  Company Number: PHHY2013JP123112

PATIENT
  Age: 35 Year
  Sex: Female

DRUGS (3)
  1. FEMARA [Suspect]
     Indication: INFERTILITY
     Dosage: 2.5 MG, DAILY
     Route: 048
     Dates: start: 20130927, end: 20130929
  2. FEMARA [Suspect]
     Indication: OFF LABEL USE
  3. SEROPHENE [Suspect]
     Dosage: 50 MG, DAILY
     Route: 048
     Dates: start: 20131001, end: 20131006

REACTIONS (2)
  - Thrombosis [Not Recovered/Not Resolved]
  - Haematoma [Unknown]
